FAERS Safety Report 22068148 (Version 3)
Quarter: 2024Q3

REPORT INFORMATION
  Report Type: Spontaneous
  Country: BR (occurrence: BR)
  Receive Date: 20230307
  Receipt Date: 20240912
  Transmission Date: 20241016
  Serious: Yes (Hospitalization, Other)
  Sender: CELLTRION
  Company Number: BR-CELLTRION INC.-2023BR004637

PATIENT

DRUGS (6)
  1. INFLIXIMAB [Suspect]
     Active Substance: INFLIXIMAB
     Indication: Ankylosing spondylitis
     Dosage: 4 AMPOULES (400 MG) EVERY 6 WEEKS
     Route: 042
     Dates: start: 20220929
  2. INFLIXIMAB [Suspect]
     Active Substance: INFLIXIMAB
     Dosage: 4 AMPOULES (400 MG) EVERY 6 WEEKS
     Route: 042
     Dates: start: 202407
  3. DULOXETINE HYDROCHLORIDE [Concomitant]
     Active Substance: DULOXETINE HYDROCHLORIDE
     Indication: Pain
     Dosage: 2 TABLETS A DAY
     Route: 048
  4. PREGABALIN [Concomitant]
     Active Substance: PREGABALIN
     Indication: Pain
     Dosage: 2 TABLETS A DAY
     Route: 048
  5. WALSARTAN [Concomitant]
     Indication: Hypertension
     Dosage: 2 TABLETS A DAY
     Route: 048
  6. HYDROCHLOROTHIAZIDE [Concomitant]
     Active Substance: HYDROCHLOROTHIAZIDE
     Indication: Hypertension
     Dosage: 2 TABLETS A DAY
     Route: 048

REACTIONS (5)
  - Trigeminal neuralgia [Recovering/Resolving]
  - Vocal cord paralysis [Recovering/Resolving]
  - Arthritis [Unknown]
  - Malaise [Unknown]
  - Intentional dose omission [Unknown]
